FAERS Safety Report 7362567-3 (Version None)
Quarter: 2011Q1

REPORT INFORMATION
  Report Type: 
  Country: None (occurrence: None)
  Receive Date: 20110320
  Receipt Date: 20100908
  Transmission Date: 20110831
  Serious: Yes (Other)
  Sender: FDA-Public Use
  Company Number: US-BAYER-200940987NA

PATIENT
  Sex: Female
  Weight: 64.853 kg

DRUGS (9)
  1. OCELLA [Suspect]
     Indication: PREMENSTRUAL SYNDROME
     Dosage: UNK
     Dates: start: 20100201, end: 20100701
  2. OCELLA [Suspect]
     Indication: UTERINE LEIOMYOMA
  3. ADVIL LIQUI-GELS [Concomitant]
  4. YAZ [Suspect]
     Indication: UTERINE LEIOMYOMA
  5. IBUPROFEN AL [Concomitant]
  6. TYLENOL REGULAR [Concomitant]
     Indication: PAIN
  7. YAZ [Suspect]
     Indication: MENSTRUATION IRREGULAR
  8. OCELLA [Suspect]
     Indication: MENSTRUATION IRREGULAR
  9. YAZ [Suspect]
     Indication: PREMENSTRUAL SYNDROME
     Dosage: 1 DF (DAILY DOSE), QD, ORAL
     Route: 048
     Dates: start: 20070316, end: 20100201

REACTIONS (3)
  - PAIN [None]
  - CHOLECYSTITIS CHRONIC [None]
  - BILIARY DYSKINESIA [None]
